FAERS Safety Report 5835103-8 (Version None)
Quarter: 2008Q3

REPORT INFORMATION
  Report Type: 
  Country: None (occurrence: None)
  Receive Date: 20080806
  Receipt Date: 20080722
  Transmission Date: 20090109
  Serious: Yes (Hospitalization)
  Sender: FDA-Public Use
  Company Number: US-BAYER-200812961BCC

PATIENT
  Age: 66 Year
  Sex: Male
  Weight: 111 kg

DRUGS (9)
  1. ASPIRIN [Suspect]
     Indication: DRUG USE FOR UNKNOWN INDICATION
  2. TEMOZOLOMIDE [Suspect]
     Indication: GLIOBLASTOMA MULTIFORME
     Dates: start: 20071113, end: 20080318
  3. BEVACIZUMAB [Suspect]
     Indication: GLIOBLASTOMA MULTIFORME
     Route: 042
     Dates: start: 20071113
  4. KEPPRA [Suspect]
  5. LISINOPRIL [Suspect]
  6. TOPROL-XL [Suspect]
  7. DECADRON [Concomitant]
  8. PROTONIX [Concomitant]
  9. SENNA [Concomitant]

REACTIONS (8)
  - ACUTE MYOCARDIAL INFARCTION [None]
  - ASTHENIA [None]
  - BRADYCARDIA [None]
  - CHEST PAIN [None]
  - CONTUSION [None]
  - FATIGUE [None]
  - SPEECH DISORDER [None]
  - VISION BLURRED [None]
